FAERS Safety Report 11082291 (Version 3)
Quarter: 2016Q2

REPORT INFORMATION
  Report Type: Spontaneous
  Country: US (occurrence: US)
  Receive Date: 20150501
  Receipt Date: 20160516
  Transmission Date: 20160815
  Serious: No
  Sender: FDA-Public Use
  Company Number: US-PFIZER INC-2015142777

PATIENT
  Age: 54 Year
  Sex: Female
  Weight: 88.48 kg

DRUGS (18)
  1. MOBIC [Concomitant]
     Active Substance: MELOXICAM
     Dosage: 15 MG, AS NEEDED (1 TABLET ONCE A DAY PRN)
  2. CURCUMIN [Concomitant]
     Active Substance: CURCUMIN
     Dosage: 500 MG, UNK
  3. TIZANIDINE. [Concomitant]
     Active Substance: TIZANIDINE
     Dosage: 2 MG, 1 TABLET AS NEEDED EVERY 8 HOURS
  4. MELATONIN [Concomitant]
     Active Substance: MELATONIN
     Dosage: 5 MG, AS NEEDED (3 TABLET AT BEDTIME AS NEEDED WITH FOOD ONCE A DAY)
  5. BELSOMRA [Concomitant]
     Active Substance: SUVOREXANT
     Dosage: 20 MG, AS NEEDED (1 TABLET AT BEDTIME AS NEEDED ONCE A DAY)
  6. SYNTHROID [Concomitant]
     Active Substance: LEVOTHYROXINE SODIUM
     Dosage: 112 UG, 1X/DAY
  7. TURMERIC [Concomitant]
     Active Substance: TURMERIC
     Dosage: 500 MG, UNK
  8. MINOCYCLINE [Concomitant]
     Active Substance: MINOCYCLINE\MINOCYCLINE HYDROCHLORIDE
     Dosage: 90 MG, AS DIRECTED ONCE A DAY
  9. LYRICA [Suspect]
     Active Substance: PREGABALIN
     Indication: FIBROMYALGIA
     Dosage: 75 MG, 2X/DAY
     Dates: start: 2014
  10. IMITREX [Concomitant]
     Active Substance: SUMATRIPTAN SUCCINATE
     Indication: MIGRAINE
     Dosage: 100 MG, AS NEEDED (MAY REPEAT IN 2 H, MAX 200MG/24 H)
  11. VITAMIN B [Concomitant]
     Active Substance: VITAMIN B
  12. VALERIAN ROOT [Concomitant]
     Active Substance: VALERIAN
     Dosage: 450 MG, AS NEEDED (1 CAPSULE BEFORE BEDTIME AS NEEDED ONCE A DAY)
  13. MAGNESIUM [Concomitant]
     Active Substance: MAGNESIUM
     Dosage: 250 MG, 1X/DAY (1 TABLET WITH A MEAL ONCE A DAY)
  14. CALCIUM PLUS D3 [Concomitant]
     Dosage: UNK, (500-1000-40MG-UNT-MCG TABLET)
  15. AMBIEN [Concomitant]
     Active Substance: ZOLPIDEM TARTRATE
     Dosage: 10 MG TABLET (1/2-1 TABLET AT BEDTIME AS NEEDED ONCE A DAY)
  16. RECLAST [Concomitant]
     Active Substance: ZOLEDRONIC ACID
     Dosage: 5MG/100ML SOLUTION, 5 MG YEARLY
  17. CLOTRIMAZOLE. [Concomitant]
     Active Substance: CLOTRIMAZOLE
     Dosage: 10 MG, (1 TROCHE 5 TIMES A DAY)
  18. CYCLOBENZAPRINE [Concomitant]
     Active Substance: CYCLOBENZAPRINE
     Dosage: 10 MG, AS NEEDED (THREE TIMES DAILY AS NEEDED TID)
     Route: 048

REACTIONS (1)
  - Pruritus [Recovered/Resolved]

NARRATIVE: CASE EVENT DATE: 201504
